FAERS Safety Report 15469809 (Version 2)
Quarter: 2018Q4

REPORT INFORMATION
  Report Type: Spontaneous
  Country: CL (occurrence: CL)
  Receive Date: 20181005
  Receipt Date: 20181010
  Transmission Date: 20190205
  Serious: Yes (Death)
  Sender: FDA-Public Use
  Company Number: PHHY2018CL115734

PATIENT
  Age: 62 Year
  Sex: Female

DRUGS (2)
  1. BUPROPION. [Suspect]
     Active Substance: BUPROPION
     Indication: AFFECTIVE DISORDER
     Dosage: 9.5 G, UNK
     Route: 065
     Dates: start: 201702
  2. CHLORPROMAZINE. [Suspect]
     Active Substance: CHLORPROMAZINE
     Indication: AFFECTIVE DISORDER
     Dosage: 1.5 G, UNK
     Route: 065
     Dates: start: 201702

REACTIONS (14)
  - Hyperreflexia [Fatal]
  - Hypoxic-ischaemic encephalopathy [Fatal]
  - Seizure [Fatal]
  - Myoclonus [Fatal]
  - Overdose [Fatal]
  - Gaze palsy [Fatal]
  - Altered state of consciousness [Fatal]
  - Hypertonia [Fatal]
  - Extensor plantar response [Fatal]
  - Tachycardia [Fatal]
  - Electrocardiogram QT prolonged [Fatal]
  - Hypotension [Fatal]
  - Cardiac arrest [Fatal]
  - Toxicity to various agents [Fatal]

NARRATIVE: CASE EVENT DATE: 201702
